FAERS Safety Report 24617573 (Version 1)
Quarter: 2024Q4

REPORT INFORMATION
  Report Type: Spontaneous
  Country: JP (occurrence: JP)
  Receive Date: 20241114
  Receipt Date: 20241114
  Transmission Date: 20250114
  Serious: Yes (Death, Other)
  Sender: ASTELLAS
  Company Number: JP-ASTELLAS-2024-AER-017273

PATIENT
  Age: 3 Decade
  Sex: Male
  Weight: 54 kg

DRUGS (8)
  1. TACROLIMUS [Suspect]
     Active Substance: TACROLIMUS
     Indication: Prophylaxis against graft versus host disease
     Route: 065
  2. FLUDARABINE [Concomitant]
     Active Substance: FLUDARABINE PHOSPHATE
     Indication: Bone marrow conditioning regimen
     Route: 065
  3. BUSULFAN [Concomitant]
     Active Substance: BUSULFAN
     Indication: Bone marrow conditioning regimen
     Route: 065
  4. MELPHALAN [Concomitant]
     Active Substance: MELPHALAN
     Indication: Bone marrow conditioning regimen
     Route: 065
  5. MYCOPHENOLATE MOFETIL [Concomitant]
     Active Substance: MYCOPHENOLATE MOFETIL
     Indication: Prophylaxis against graft versus host disease
     Route: 065
  6. PIPERACILLIN SODIUM\TAZOBACTAM SODIUM [Concomitant]
     Active Substance: PIPERACILLIN SODIUM\TAZOBACTAM SODIUM
     Indication: Product used for unknown indication
     Route: 065
  7. Recombinant human thrombomodulin [Concomitant]
     Indication: Venoocclusive liver disease
     Dosage: 130U/KG
     Route: 065
  8. PREDNISOLONE [Concomitant]
     Active Substance: PREDNISOLONE
     Indication: Venoocclusive liver disease
     Route: 065

REACTIONS (4)
  - Multiple organ dysfunction syndrome [Fatal]
  - Corynebacterium sepsis [Unknown]
  - Pre-engraftment immune reaction [Unknown]
  - Venoocclusive liver disease [Unknown]
